FAERS Safety Report 7523931-2 (Version None)
Quarter: 2011Q2

REPORT INFORMATION
  Report Type: 
  Country: None (occurrence: None)
  Receive Date: 20110603
  Receipt Date: 20110525
  Transmission Date: 20111010
  Serious: Yes (Other)
  Sender: FDA-Public Use
  Company Number: US-RB-024256-11

PATIENT
  Age: 62 Year
  Sex: Male

DRUGS (2)
  1. SUBOXONE [Suspect]
     Indication: PAIN
     Dosage: UNKNOWN DOSING DETAILS
     Route: 065
  2. SUBOXONE [Suspect]
     Indication: PAIN
     Route: 060
     Dates: start: 20110301

REACTIONS (18)
  - CHEST DISCOMFORT [None]
  - OFF LABEL USE [None]
  - ORAL ADMINISTRATION COMPLICATION [None]
  - HALLUCINATION, VISUAL [None]
  - FATIGUE [None]
  - GASTROOESOPHAGEAL REFLUX DISEASE [None]
  - THERAPEUTIC RESPONSE UNEXPECTED [None]
  - INCORRECT ROUTE OF DRUG ADMINISTRATION [None]
  - NAUSEA [None]
  - APATHY [None]
  - INSOMNIA [None]
  - HEART RATE INCREASED [None]
  - DRUG WITHDRAWAL SYNDROME [None]
  - HYPOAESTHESIA [None]
  - PALPITATIONS [None]
  - NERVOUSNESS [None]
  - HYPOAESTHESIA ORAL [None]
  - MUSCLE TWITCHING [None]
